FAERS Safety Report 4278509-3 (Version None)
Quarter: 2004Q1

REPORT INFORMATION
  Report Type: 
  Country: None (occurrence: None)
  Receive Date: 20040121
  Receipt Date: 20040106
  Transmission Date: 20041129
  Serious: Yes (Hospitalization)
  Sender: FDA-Public Use
  Company Number: USA031050306

PATIENT
  Sex: Female

DRUGS (2)
  1. FORTEO [Suspect]
     Dates: start: 20030901
  2. UNSPECIFIED MEDICATION FOR DEPRESSION [Concomitant]

REACTIONS (1)
  - FRACTURED SACRUM [None]
